FAERS Safety Report 22593193 (Version 6)
Quarter: 2023Q4

REPORT INFORMATION
  Report Type: Report from Study
  Country: US (occurrence: US)
  Receive Date: 20230613
  Receipt Date: 20231030
  Transmission Date: 20240110
  Serious: No
  Sender: FDA-Public Use
  Company Number: US-002147023-NVSC2023US134611

PATIENT
  Sex: Female

DRUGS (1)
  1. ENTRESTO [Suspect]
     Active Substance: SACUBITRIL\VALSARTAN
     Indication: Product used for unknown indication
     Dosage: 49/51MG, BID
     Route: 048
     Dates: start: 20230522

REACTIONS (9)
  - Nervousness [Unknown]
  - Vision blurred [Recovering/Resolving]
  - Weight fluctuation [Unknown]
  - Blood pressure fluctuation [Not Recovered/Not Resolved]
  - Meibomian gland dysfunction [Unknown]
  - Visual impairment [Unknown]
  - Dyspnoea [Recovering/Resolving]
  - Dysphemia [Unknown]
  - Memory impairment [Unknown]
